FAERS Safety Report 8227501-2 (Version None)
Quarter: 2012Q1

REPORT INFORMATION
  Report Type: 
  Country: None (occurrence: None)
  Receive Date: 20120322
  Receipt Date: 20120313
  Transmission Date: 20120608
  Serious: Yes (Hospitalization, Other)
  Sender: FDA-Public Use
  Company Number: PHFR2011GB05800

PATIENT
  Sex: Female

DRUGS (6)
  1. ZOPICLONE [Concomitant]
     Dosage: 7.5 MG, DAILY
     Route: 048
  2. OLANZAPINE [Concomitant]
     Indication: PSYCHOTIC DISORDER
     Dosage: UNK
     Route: 048
  3. CLOZARIL [Suspect]
     Indication: SCHIZOPHRENIA
     Dosage: UNK UKN, UNK
     Route: 048
     Dates: start: 20110926, end: 20111018
  4. DIAZEPAM [Concomitant]
     Dosage: 2 MG, DAILY
     Route: 048
     Dates: start: 20110815
  5. VALPROATE SODIUM [Concomitant]
     Dosage: 500 MG, DAILY
     Route: 048
  6. DIAZEPAM [Concomitant]
     Dosage: 5 MG, DAILY
     Route: 048

REACTIONS (4)
  - ASTHMA [None]
  - RENAL IMPAIRMENT [None]
  - PNEUMONIA [None]
  - DIARRHOEA [None]
